FAERS Safety Report 22287221 (Version 5)
Quarter: 2024Q1

REPORT INFORMATION
  Report Type: Spontaneous
  Country: JP (occurrence: JP)
  Receive Date: 20230505
  Receipt Date: 20240207
  Transmission Date: 20240409
  Serious: Yes (Death, Hospitalization, Other)
  Sender: FDA-Public Use
  Company Number: JP-MSD-M2023-10406

PATIENT
  Age: 6 Decade
  Sex: Male

DRUGS (3)
  1. KEYTRUDA [Suspect]
     Active Substance: PEMBROLIZUMAB
     Indication: Oesophageal carcinoma
     Dosage: 200 MILLIGRAM, Q3W
     Route: 041
     Dates: start: 202301, end: 202301
  2. FLUOROURACIL [Concomitant]
     Active Substance: FLUOROURACIL
     Indication: Oesophageal carcinoma
     Dosage: 800 MILLIGRAM/SQ. METER, 5 TIMES EVERY 4 WEEKS
     Route: 041
     Dates: start: 202301, end: 2023
  3. CISPLATIN [Concomitant]
     Active Substance: CISPLATIN
     Indication: Oesophageal carcinoma
     Dosage: 80 MILLIGRAM/SQ. METER, EVERY 4 WEEKS
     Route: 041
     Dates: start: 202301, end: 2023

REACTIONS (3)
  - Pneumonia [Fatal]
  - Decreased immune responsiveness [Fatal]
  - Immune-mediated hepatic disorder [Recovering/Resolving]

NARRATIVE: CASE EVENT DATE: 20230228
